FAERS Safety Report 7576708-6 (Version None)
Quarter: 2011Q2

REPORT INFORMATION
  Report Type: 
  Country: None (occurrence: None)
  Receive Date: 20110628
  Receipt Date: 20110620
  Transmission Date: 20111010
  Serious: Yes (Death, Life-Threatening, Hospitalization, Disabling)
  Sender: FDA-Public Use
  Company Number: DE-ASTELLAS-2011EU003474

PATIENT
  Sex: Female
  Weight: 78 kg

DRUGS (5)
  1. MYCOPHENOLATE MEFETIL [Suspect]
     Indication: RENAL TRANSPLANT
     Dosage: 250 MG, BID
     Route: 042
     Dates: start: 20110518, end: 20110603
  2. MYCOPHENOLATE MEFETIL [Suspect]
     Dosage: 720 MG, UNKNOWN/D
     Route: 048
     Dates: start: 20110221
  3. MYCOPHENOLATE MEFETIL [Suspect]
     Dosage: 500 MG, BID
     Route: 042
  4. PROGRAF [Suspect]
     Indication: RENAL TRANSPLANT
     Dosage: 2.5 MG, UNKNOWN/D
     Route: 048
     Dates: start: 20110221, end: 20110606
  5. RITUXIMAB [Suspect]
     Indication: RENAL TRANSPLANT
     Dosage: 375 MG/M2, UNKNOWN/D
     Route: 042
     Dates: start: 20110217

REACTIONS (9)
  - RETROPERITONEAL HAEMORRHAGE [None]
  - PANCREATITIS ACUTE [None]
  - ABSCESS [None]
  - BACTERIAL INFECTION [None]
  - SEPSIS [None]
  - PNEUMONIA [None]
  - CANDIDIASIS [None]
  - INTESTINAL ISCHAEMIA [None]
  - INFARCTION [None]
